FAERS Safety Report 9137630 (Version 4)
Quarter: 2013Q3

REPORT INFORMATION
  Report Type: Spontaneous
  Country: US (occurrence: US)
  Receive Date: 20130304
  Receipt Date: 20130725
  Transmission Date: 20140515
  Serious: Yes (Other)
  Sender: FDA-Public Use
  Company Number: US-TEVA-389158USA

PATIENT
  Age: 51 Year
  Sex: Female

DRUGS (7)
  1. ESCITALOPRAM [Suspect]
     Indication: ANXIETY
     Dates: start: 201301
  2. TERBINAFINE [Concomitant]
  3. LORAZEPAM [Concomitant]
  4. BACTRIM DS [Concomitant]
  5. BISACODYL [Concomitant]
  6. TRAMADOL [Concomitant]
  7. OMEPRAZOLE [Concomitant]

REACTIONS (4)
  - Loss of consciousness [Recovered/Resolved]
  - Syncope [Recovered/Resolved]
  - Contusion [Unknown]
  - Laceration [Unknown]
